FAERS Safety Report 12616565 (Version 1)
Quarter: 2016Q3

REPORT INFORMATION
  Report Type: Spontaneous
  Country: IT (occurrence: JP)
  Receive Date: 20160802
  Receipt Date: 20160802
  Transmission Date: 20161109
  Serious: Yes (Death)
  Sender: FDA-Public Use
  Company Number: IT-SIGMA-TAU US-2016STPI000558

PATIENT
  Sex: Male

DRUGS (1)
  1. CARNITOR [Suspect]
     Active Substance: LEVOCARNITINE
     Indication: INBORN ERROR OF METABOLISM
     Route: 042

REACTIONS (1)
  - Methaemoglobinaemia [Fatal]
